FAERS Safety Report 10256245 (Version 1)
Quarter: 2014Q2

REPORT INFORMATION
  Report Type: Spontaneous
  Country: US (occurrence: US)
  Receive Date: 20140624
  Receipt Date: 20140624
  Transmission Date: 20141212
  Serious: Yes (Hospitalization)
  Sender: FDA-Public Use
  Company Number: US-ABBVIE-14P-163-1250152-00

PATIENT
  Age: 33 Year
  Sex: Male

DRUGS (10)
  1. RITONAVIR [Suspect]
     Indication: HIV INFECTION
  2. TRAZODONE [Interacting]
     Indication: INSOMNIA
  3. NORVASC [Concomitant]
     Indication: PRODUCT USED FOR UNKNOWN INDICATION
  4. LISINOPRIL [Concomitant]
     Indication: PRODUCT USED FOR UNKNOWN INDICATION
  5. PROPANOLOL [Concomitant]
     Indication: PRODUCT USED FOR UNKNOWN INDICATION
  6. SUMATRIPTAN [Concomitant]
     Indication: PRODUCT USED FOR UNKNOWN INDICATION
  7. TOPIRAMATE [Concomitant]
     Indication: PRODUCT USED FOR UNKNOWN INDICATION
  8. PANTOPRAZOLE [Concomitant]
     Indication: PRODUCT USED FOR UNKNOWN INDICATION
  9. EMTRICITABINE W/TENOFOVIR [Concomitant]
     Indication: HIV INFECTION
  10. TRUVADA [Concomitant]
     Indication: HIV INFECTION

REACTIONS (2)
  - Priapism [Recovered/Resolved]
  - Drug interaction [Unknown]
